FAERS Safety Report 9893641 (Version 1)
Quarter: 2014Q1

REPORT INFORMATION
  Report Type: Spontaneous
  Country: FR (occurrence: FR)
  Receive Date: 20140213
  Receipt Date: 20140213
  Transmission Date: 20141002
  Serious: Yes (Hospitalization, Other)
  Sender: FDA-Public Use
  Company Number: FR-ASTRAZENECA-2014SE08776

PATIENT
  Age: 30417 Day
  Sex: Female
  Weight: 71 kg

DRUGS (4)
  1. INEXIUM [Suspect]
     Indication: GASTROOESOPHAGEAL REFLUX DISEASE
     Dates: end: 20131218
  2. TAZOCILLINE [Suspect]
     Indication: PYELONEPHRITIS ACUTE
     Dosage: 4G/500 MG, FOUR TIMES A DAY
     Route: 042
     Dates: start: 20131031, end: 20131218
  3. TARDYFERON [Suspect]
     Indication: IRON DEFICIENCY ANAEMIA
     Route: 048
     Dates: end: 20131218
  4. AMIKACINE MYLAN [Concomitant]
     Indication: INFECTION
     Dosage: FOUR TIMES A DAY
     Route: 042
     Dates: start: 20131031

REACTIONS (5)
  - Drug reaction with eosinophilia and systemic symptoms [Recovering/Resolving]
  - Emphysematous pyelonephritis [Unknown]
  - White blood cell count increased [Unknown]
  - Neutrophil count increased [Unknown]
  - Pyrexia [Unknown]
